FAERS Safety Report 8273834-3 (Version None)
Quarter: 2012Q2

REPORT INFORMATION
  Report Type: 
  Country: None (occurrence: None)
  Receive Date: 20120411
  Receipt Date: 20120405
  Transmission Date: 20120825
  Serious: Yes (Death)
  Sender: FDA-Public Use
  Company Number: US-CELGENEUS-163-21880-12040761

PATIENT
  Sex: Male

DRUGS (9)
  1. BECLOMETHASONE DIPROPIONATE [Concomitant]
     Route: 065
  2. PROPRANOLOL HYDROCHLORIDE [Concomitant]
     Route: 065
  3. ASPIRIN [Concomitant]
     Route: 065
  4. REVLIMID [Suspect]
     Dosage: 5 MILLIGRAM
     Route: 048
     Dates: start: 20120316, end: 20120101
  5. MULTI-VITAMINS [Concomitant]
     Route: 065
  6. METRONIDAZOLE [Concomitant]
     Route: 065
  7. ALLOPURINOL [Concomitant]
     Route: 065
  8. RENVELA [Concomitant]
     Route: 065
  9. BETHANECHOL CHLORIDE [Concomitant]
     Route: 065

REACTIONS (1)
  - DEATH [None]
